FAERS Safety Report 22035633 (Version 2)
Quarter: 2024Q1

REPORT INFORMATION
  Report Type: Report from Study
  Country: CA (occurrence: CA)
  Receive Date: 20230224
  Receipt Date: 20240307
  Transmission Date: 20240410
  Serious: Yes (Other)
  Sender: FDA-Public Use
  Company Number: CA-PFIZER INC-202300028387

PATIENT
  Age: 57 Year
  Sex: Female

DRUGS (13)
  1. LEUCOVORIN CALCIUM [Suspect]
     Active Substance: LEUCOVORIN CALCIUM
     Dosage: 5 MG, 1X/DAY
     Route: 048
  2. PROPRANOLOL HYDROCHLORIDE [Suspect]
     Active Substance: PROPRANOLOL HYDROCHLORIDE
     Dosage: 10 MG, 3X/DAY
     Route: 065
  3. PROPRANOLOL HYDROCHLORIDE [Suspect]
     Active Substance: PROPRANOLOL HYDROCHLORIDE
     Dosage: 10 MG, 3X/DAY
     Route: 048
  4. DOXYCYCLINE HYCLATE [Suspect]
     Active Substance: DOXYCYCLINE HYCLATE
     Dosage: 10 MG, 2X/DAY
     Route: 065
  5. DOXYCYCLINE HYCLATE [Suspect]
     Active Substance: DOXYCYCLINE HYCLATE
     Dosage: 10 MG, 2X/DAY
     Route: 065
  6. DULOXETINE HYDROCHLORIDE [Suspect]
     Active Substance: DULOXETINE HYDROCHLORIDE
     Dosage: 30 MG, 2X/DAY
     Route: 048
  7. CELEBREX [Concomitant]
     Active Substance: CELECOXIB
     Dosage: UNK, 2X/DAY
     Route: 048
  8. CELEBREX [Concomitant]
     Active Substance: CELECOXIB
     Dosage: 2 DF, 1X/DAY
     Route: 048
  9. GABAPENTIN [Concomitant]
     Active Substance: GABAPENTIN
     Dosage: UNK, 3X/DAY
     Route: 048
  10. METHOTREXATE [Concomitant]
     Active Substance: METHOTREXATE
     Dosage: UNK, WEEKLY
     Route: 048
  11. METHOTREXATE [Concomitant]
     Active Substance: METHOTREXATE
     Dosage: UNK, WEEKLY
     Route: 048
  12. SULFASALAZINE [Concomitant]
     Active Substance: SULFASALAZINE
     Dosage: UNK, 2X/DAY
     Route: 048
  13. VITAMIN D NOS [Concomitant]
     Active Substance: VITAMIN D NOS
     Route: 048

REACTIONS (3)
  - Drug ineffective [Unknown]
  - Psoriatic arthropathy [Unknown]
  - Nasopharyngitis [Unknown]
